FAERS Safety Report 5112574-6 (Version None)
Quarter: 2006Q3

REPORT INFORMATION
  Report Type: 
  Country: None (occurrence: None)
  Receive Date: 20060731
  Receipt Date: 20060629
  Transmission Date: 20061208
  Serious: No
  Sender: FDA-Public Use
  Company Number: 2006PV016716

PATIENT
  Age: 45 Year
  Sex: Female
  Weight: 97.977 kg

DRUGS (2)
  1. BYETTA [Suspect]
     Indication: DIABETES MELLITUS NON-INSULIN-DEPENDENT
     Dosage: 5MCG;BID;SC
     Route: 058
     Dates: start: 20060623
  2. LEVOTHYROXINE SODIUM [Concomitant]

REACTIONS (3)
  - BURNING SENSATION [None]
  - ERYTHEMA [None]
  - URTICARIA LOCALISED [None]
